FAERS Safety Report 6971774-0 (Version None)
Quarter: 2010Q3

REPORT INFORMATION
  Report Type: 
  Country: None (occurrence: None)
  Receive Date: 20100903
  Receipt Date: 20100824
  Transmission Date: 20110219
  Serious: Yes (Hospitalization)
  Sender: FDA-Public Use
  Company Number: B0672513A

PATIENT
  Age: 52 Year
  Sex: Male

DRUGS (1)
  1. ROPINIROLE HYDROCHLORIDE TABLET-EXTENDED RELEASE (GENERIC (ROPINIROLE [Suspect]
     Indication: PARKINSON'S DISEASE

REACTIONS (3)
  - ATRIAL FIBRILLATION [None]
  - CARDIAC ARREST [None]
  - SYNCOPE [None]
